FAERS Safety Report 26094715 (Version 1)
Quarter: 2025Q4

REPORT INFORMATION
  Report Type: Spontaneous
  Country: US (occurrence: US)
  Receive Date: 20251126
  Receipt Date: 20251126
  Transmission Date: 20260118
  Serious: No
  Sender: MERCK SHARP & DOHME LLC
  Company Number: US-009507513-2354504

PATIENT
  Weight: 38.7 kg

DRUGS (9)
  1. SOTATERCEPT [Suspect]
     Active Substance: SOTATERCEPT
     Indication: Pulmonary arterial hypertension
     Dosage: DOSE 1
     Route: 058
  2. SOTATERCEPT [Suspect]
     Active Substance: SOTATERCEPT
     Dosage: DOSE 2
     Route: 058
  3. SOTATERCEPT [Suspect]
     Active Substance: SOTATERCEPT
     Dosage: DOSE 3
     Route: 058
  4. SOTATERCEPT [Suspect]
     Active Substance: SOTATERCEPT
     Dosage: DOSE 4
     Route: 058
  5. SOTATERCEPT [Suspect]
     Active Substance: SOTATERCEPT
     Dosage: DOSE 5
     Route: 058
  6. SOTATERCEPT [Suspect]
     Active Substance: SOTATERCEPT
     Dosage: DOSE 6
     Route: 058
  7. SILDENAFIL [Concomitant]
     Active Substance: SILDENAFIL
     Indication: Pulmonary arterial hypertension
     Dosage: TIME INTERVAL: 0.33333333 DAYS
  8. AMBRISENTAN [Concomitant]
     Active Substance: AMBRISENTAN
     Indication: Pulmonary arterial hypertension
  9. TREPROSTINIL [Concomitant]
     Active Substance: TREPROSTINIL
     Indication: Pulmonary arterial hypertension
     Dosage: 120 NG/KG/MIN

REACTIONS (1)
  - Product use issue [Unknown]
